FAERS Safety Report 9009422 (Version 3)
Quarter: 2013Q1

REPORT INFORMATION
  Report Type: Spontaneous
  Country: US (occurrence: US)
  Receive Date: 20130111
  Receipt Date: 20130128
  Transmission Date: 20140127
  Serious: Yes (Life-Threatening)
  Sender: FDA-Public Use
  Company Number: US-JNJFOC-20130102434

PATIENT
  Sex: 0

DRUGS (1)
  1. TRAMADOL  HYDROCHLORIDE [Suspect]
     Indication: PROCEDURAL PAIN
     Route: 051

REACTIONS (1)
  - Respiratory disorder [Unknown]
